FAERS Safety Report 25091608 (Version 2)
Quarter: 2025Q3

REPORT INFORMATION
  Report Type: Spontaneous
  Country: US (occurrence: US)
  Receive Date: 20250318
  Receipt Date: 20250915
  Transmission Date: 20251021
  Serious: No
  Sender: SANOFI AVENTIS
  Company Number: US-SA-2025SA077245

PATIENT
  Age: 85 Year
  Sex: Male

DRUGS (3)
  1. DUPIXENT [Suspect]
     Active Substance: DUPILUMAB
     Indication: Dermatitis atopic
     Dosage: 300 MG, QOW
     Route: 058
  2. TACROLIMUS [Concomitant]
     Active Substance: TACROLIMUS
  3. KETOCONAZOLE [Concomitant]
     Active Substance: KETOCONAZOLE

REACTIONS (4)
  - Puncture site haemorrhage [Unknown]
  - Puncture site bruise [Unknown]
  - Skin laceration [Unknown]
  - Eye pruritus [Unknown]
